FAERS Safety Report 17943628 (Version 1)
Quarter: 2020Q2

REPORT INFORMATION
  Report Type: Spontaneous
  Country: CA (occurrence: CA)
  Receive Date: 20200625
  Receipt Date: 20200625
  Transmission Date: 20200714
  Serious: Yes (Hospitalization, Other)
  Sender: FDA-Public Use
  Company Number: CA-ACCORD-186527

PATIENT
  Age: 29 Year
  Sex: Male

DRUGS (1)
  1. QUETIAPINE. [Suspect]
     Active Substance: QUETIAPINE
     Indication: ADJUSTMENT DISORDER WITH DEPRESSED MOOD
     Route: 048

REACTIONS (10)
  - Weight increased [Unknown]
  - Aggression [Unknown]
  - Suicide threat [Unknown]
  - Delusion [Unknown]
  - Waist circumference increased [Unknown]
  - Mania [Unknown]
  - Mental disorder [Unknown]
  - Obsessive thoughts [Unknown]
  - Social problem [Unknown]
  - Initial insomnia [Unknown]
